FAERS Safety Report 14502389 (Version 1)
Quarter: 2018Q1

REPORT INFORMATION
  Report Type: Spontaneous
  Country: US (occurrence: US)
  Receive Date: 20180208
  Receipt Date: 20180208
  Transmission Date: 20180509
  Serious: No
  Sender: FDA-Public Use
  Company Number: US-AUROBINDO-AUR-APL-2017-37282

PATIENT
  Sex: Female

DRUGS (2)
  1. AMOXICILLIN+CLAVULANIC ACID [Suspect]
     Active Substance: AMOXICILLIN\CLAVULANIC ACID
     Indication: SINUSITIS
     Dosage: 4.1 ML, TWO TIMES A DAY
     Route: 065
     Dates: start: 20170616
  2. AMOXICILLIN+CLAVULANIC ACID [Suspect]
     Active Substance: AMOXICILLIN\CLAVULANIC ACID
     Indication: EAR INFECTION

REACTIONS (3)
  - Drug ineffective [Unknown]
  - Product storage error [Unknown]
  - Product colour issue [Unknown]

NARRATIVE: CASE EVENT DATE: 20170617
